FAERS Safety Report 4951292-1 (Version None)
Quarter: 2006Q1

REPORT INFORMATION
  Report Type: 
  Country: None (occurrence: None)
  Receive Date: 20060317
  Receipt Date: 20060307
  Transmission Date: 20060701
  Serious: Yes (Other)
  Sender: FDA-Public Use
  Company Number: 2006BI003730

PATIENT
  Age: 48 Year
  Sex: Female
  Weight: 49.8957 kg

DRUGS (4)
  1. AVONEX [Suspect]
     Indication: MULTIPLE SCLEROSIS
     Dosage: 30 UG;QW; IM
     Route: 030
     Dates: start: 20040401
  2. SYNTHROID [Concomitant]
  3. FEMARA [Concomitant]
  4. TAMOXIFEN CITRATE [Concomitant]

REACTIONS (3)
  - BLADDER DISORDER [None]
  - BREAST CANCER FEMALE [None]
  - PALPITATIONS [None]
